FAERS Safety Report 16619907 (Version 1)
Quarter: 2019Q3

REPORT INFORMATION
  Report Type: Report from Study
  Country: US (occurrence: US)
  Receive Date: 20190723
  Receipt Date: 20190723
  Transmission Date: 20191004
  Serious: Yes (Other)
  Sender: FDA-Public Use
  Company Number: US-GILEAD-2019-0416772

PATIENT
  Sex: Female

DRUGS (3)
  1. IDELALISIB [Suspect]
     Active Substance: IDELALISIB
     Dosage: 150 MG, BID
     Route: 048
     Dates: start: 20180827
  2. IDELALISIB [Suspect]
     Active Substance: IDELALISIB
     Dosage: 150 MG
     Route: 048
     Dates: start: 20180829
  3. IDELALISIB [Suspect]
     Active Substance: IDELALISIB
     Indication: CHRONIC LYMPHOCYTIC LEUKAEMIA
     Dosage: 150 MG, BID
     Route: 048
     Dates: start: 201808

REACTIONS (4)
  - Intentional dose omission [Unknown]
  - Pyrexia [Unknown]
  - Disease progression [Unknown]
  - Drug ineffective [Unknown]
